FAERS Safety Report 4953927-6 (Version None)
Quarter: 2006Q1

REPORT INFORMATION
  Report Type: 
  Country: None (occurrence: None)
  Receive Date: 20060327
  Receipt Date: 20060316
  Transmission Date: 20060701
  Serious: Yes (Hospitalization)
  Sender: FDA-Public Use
  Company Number: KR-JNJFOC-20060205017

PATIENT
  Age: 47 Year
  Sex: Male

DRUGS (14)
  1. ULTRACET [Suspect]
     Indication: POST-TRAUMATIC PAIN
     Route: 048
  2. ALMAGEL [Concomitant]
     Route: 065
  3. ALMAGEL [Concomitant]
     Route: 065
  4. ALMAGEL [Concomitant]
     Indication: GASTRITIS
     Route: 065
  5. ANTIMODIC [Concomitant]
     Indication: GASTRITIS
     Route: 048
  6. DEPAS [Concomitant]
     Indication: GASTRITIS
     Route: 048
  7. TAGATIN [Concomitant]
     Indication: GASTRITIS
     Route: 048
  8. UNIDON [Concomitant]
     Route: 048
  9. UNIDON [Concomitant]
     Indication: GASTRITIS
     Route: 048
  10. TRAMADOL HCL [Concomitant]
     Dosage: 0.5-1AMPOULE
     Route: 065
  11. LOCID [Concomitant]
     Route: 048
  12. LOCID [Concomitant]
     Route: 048
  13. LOCID [Concomitant]
     Route: 048
  14. LOCID [Concomitant]
     Indication: GASTRITIS
     Route: 048

REACTIONS (3)
  - DIZZINESS [None]
  - NAUSEA [None]
  - SHOCK [None]
